FAERS Safety Report 5868198-6 (Version None)
Quarter: 2008Q3

REPORT INFORMATION
  Report Type: 
  Country: None (occurrence: None)
  Receive Date: 20080902
  Receipt Date: 20080825
  Transmission Date: 20090109
  Serious: Yes (Other)
  Sender: FDA-Public Use
  Company Number: FI-AMGEN-US304294

PATIENT
  Sex: Female
  Weight: 105 kg

DRUGS (9)
  1. ENBREL [Suspect]
     Indication: RHEUMATOID ARTHRITIS
     Dosage: UNSPECIFIED DOSE ONCE IN EVERY 2-3 WEEKS
     Route: 058
     Dates: start: 20070101, end: 20080730
  2. LESCOL [Concomitant]
     Route: 048
  3. LINATIL [Concomitant]
     Route: 048
  4. SOLOMET [Concomitant]
     Route: 048
  5. METHOTREXATE [Concomitant]
     Route: 048
  6. FOLIC ACID [Concomitant]
     Route: 048
  7. CIPRALEX [Concomitant]
     Route: 048
  8. SPESICOR DOS [Concomitant]
     Route: 048
  9. CALCICHEW-D3 FORTE [Concomitant]
     Route: 048

REACTIONS (7)
  - ARRHYTHMIA [None]
  - BODY TEMPERATURE INCREASED [None]
  - C-REACTIVE PROTEIN INCREASED [None]
  - DRUG EFFECT DECREASED [None]
  - JOINT SWELLING [None]
  - MIGRAINE [None]
  - RASH ERYTHEMATOUS [None]
